FAERS Safety Report 21407132 (Version 1)
Quarter: 2022Q4

REPORT INFORMATION
  Report Type: Spontaneous
  Country: US (occurrence: US)
  Receive Date: 20221004
  Receipt Date: 20221004
  Transmission Date: 20230113
  Serious: Yes (Hospitalization, Other)
  Sender: FDA-Public Use
  Company Number: US-Accord-280018

PATIENT
  Age: 14 Year
  Sex: Male
  Weight: 47.1 kg

DRUGS (3)
  1. LETROZOLE [Interacting]
     Active Substance: LETROZOLE
     Indication: Growth hormone deficiency
  2. SOMATROPIN [Interacting]
     Active Substance: SOMATROPIN
     Indication: Growth hormone deficiency
  3. DEXMETHYLPHENIDATE HYDROCHLORIDE [Interacting]
     Active Substance: DEXMETHYLPHENIDATE HYDROCHLORIDE
     Indication: Attention deficit hyperactivity disorder
     Dosage: EXTENDED RELEASE

REACTIONS (3)
  - Drug interaction [Unknown]
  - Rhabdomyolysis [Recovered/Resolved]
  - Off label use [Unknown]
